FAERS Safety Report 8074239-0 (Version None)
Quarter: 2012Q1

REPORT INFORMATION
  Report Type: 
  Country: None (occurrence: None)
  Receive Date: 20120126
  Receipt Date: 20120124
  Transmission Date: 20120608
  Serious: Yes (Hospitalization)
  Sender: FDA-Public Use
  Company Number: RU-GLAXOSMITHKLINE-Z0012304D

PATIENT
  Sex: Male
  Weight: 95 kg

DRUGS (5)
  1. AMOXICILLIN AND CLAVULANATE POTASSIUM [Concomitant]
     Indication: FEBRILE NEUTROPENIA
     Dosage: 625MG THREE TIMES PER DAY
     Route: 048
     Dates: start: 20111223, end: 20111229
  2. AMIKACIN [Concomitant]
     Indication: URINARY TRACT INFECTION
     Dosage: 1000MG PER DAY
     Route: 042
     Dates: start: 20111226, end: 20111230
  3. LINEZOLID [Concomitant]
     Indication: URINARY TRACT INFECTION
     Dosage: 600MG TWICE PER DAY
     Route: 048
     Dates: start: 20120103, end: 20120110
  4. OFATUMUMAB [Suspect]
     Indication: CHRONIC LYMPHOCYTIC LEUKAEMIA REFRACTORY
     Route: 042
     Dates: start: 20111006
  5. VANCOMYCIN [Concomitant]
     Indication: URINARY TRACT INFECTION
     Dosage: 1000MG TWICE PER DAY
     Route: 042
     Dates: start: 20111230, end: 20120102

REACTIONS (1)
  - URINARY TRACT INFECTION [None]
